FAERS Safety Report 4269163-5 (Version None)
Quarter: 2004Q1

REPORT INFORMATION
  Report Type: 
  Country: None (occurrence: None)
  Receive Date: 20040108
  Receipt Date: 20031224
  Transmission Date: 20041129
  Serious: Yes (Hospitalization)
  Sender: FDA-Public Use
  Company Number: DSA_23779_2003

PATIENT
  Age: 29 Year
  Sex: Female

DRUGS (3)
  1. LORAZEPAM [Suspect]
     Dosage: 27 MG ONCE PO
     Route: 048
     Dates: start: 20031221, end: 20031221
  2. AMITRIPTYLINE [Suspect]
     Dosage: 200 MG ONCE PO
     Route: 048
     Dates: start: 20031221, end: 20031221
  3. DOXEPIN [Suspect]
     Dosage: 200 MG ONCE PO
     Route: 048
     Dates: start: 20031221, end: 20031221

REACTIONS (3)
  - COMA [None]
  - MULTIPLE DRUG OVERDOSE [None]
  - TACHYCARDIA [None]
